FAERS Safety Report 9688754 (Version 2)
Quarter: 2013Q4

REPORT INFORMATION
  Report Type: Spontaneous
  Country: GB (occurrence: None)
  Receive Date: 20131112
  Receipt Date: 20131121
  Transmission Date: 20140711
  Serious: Yes (Other)
  Sender: FDA-Public Use
  Company Number: AUR-APL-2013-09351

PATIENT
  Age: 78 Year
  Sex: Female

DRUGS (5)
  1. BISOPROLOL (BISOPROLOL) [Suspect]
     Indication: PRODUCT USED FOR UNKNOWN INDICATION
     Route: 048
     Dates: start: 201211
  2. PRAVASTATIN (PRAVASTATIN) [Suspect]
     Indication: DRUG ERUPTION
     Route: 048
     Dates: start: 201211
  3. PRADAXA (DABIGATRAN ETEXILATE MESILATE) [Suspect]
     Indication: CEREBROVASCULAR ACCIDENT
     Dosage: 220 (110 MG 2 IN 1 D)
     Route: 048
     Dates: start: 201212
  4. AMLODIPINE (AMLODIPINE) [Concomitant]
  5. CLOPIDOGREL (CLOPIDOGREL) [Concomitant]

REACTIONS (1)
  - Connective tissue disorder [None]
